FAERS Safety Report 4279982-7 (Version None)
Quarter: 2004Q1

REPORT INFORMATION
  Report Type: 
  Country: None (occurrence: None)
  Receive Date: 20040126
  Receipt Date: 20040115
  Transmission Date: 20041129
  Serious: No
  Sender: FDA-Public Use
  Company Number: 2004GB00106

PATIENT
  Age: 75 Year
  Sex: Male

DRUGS (7)
  1. ZOLADEX [Suspect]
     Indication: PROSTATE CANCER
     Dosage: 10.8 MG Q3MO IM
     Route: 030
  2. CASODEX [Concomitant]
  3. PLAVIX [Concomitant]
  4. IKOREL [Concomitant]
  5. IMDUR [Concomitant]
  6. ZOCOR [Concomitant]
  7. LOSEC I.V. [Concomitant]

REACTIONS (2)
  - MEDICATION ERROR [None]
  - MYOCARDIAL INFARCTION [None]
